FAERS Safety Report 19681364 (Version 1)
Quarter: 2021Q3

REPORT INFORMATION
  Report Type: Spontaneous
  Country: US (occurrence: US)
  Receive Date: 20210810
  Receipt Date: 20210810
  Transmission Date: 20211014
  Serious: Yes (Other)
  Sender: FDA-Public Use
  Company Number: US-IGSA-BIG0014077

PATIENT
  Age: 26 Year
  Sex: Female

DRUGS (2)
  1. GAMUNEX?C [Suspect]
     Active Substance: HUMAN IMMUNOGLOBULIN G
     Indication: PRODUCT USED FOR UNKNOWN INDICATION
     Dosage: 450 MILLILITER
     Route: 042
     Dates: start: 20210201
  2. GAMUNEX?C [Suspect]
     Active Substance: HUMAN IMMUNOGLOBULIN G
     Dosage: UNK

REACTIONS (4)
  - Pruritus [Unknown]
  - Urticaria [Unknown]
  - Restlessness [Unknown]
  - Agitation [Unknown]

NARRATIVE: CASE EVENT DATE: 20210201
